FAERS Safety Report 6959485-9 (Version None)
Quarter: 2010Q3

REPORT INFORMATION
  Report Type: 
  Country: None (occurrence: None)
  Receive Date: 20100827
  Receipt Date: 20100818
  Transmission Date: 20110219
  Serious: Yes (Death)
  Sender: FDA-Public Use
  Company Number: 2010MA001843

PATIENT
  Age: 35 Year
  Sex: Female

DRUGS (4)
  1. LIDOCAINE HCL [Suspect]
     Indication: LASER THERAPY
  2. BARBITURATES [Concomitant]
  3. PHENYLPROPANOLAMINE [Concomitant]
  4. PHENETHYLAMINE [Concomitant]

REACTIONS (5)
  - BARBITURATES POSITIVE [None]
  - CONVULSION [None]
  - DRUG SCREEN POSITIVE [None]
  - THERAPEUTIC AGENT TOXICITY [None]
  - VICTIM OF HOMICIDE [None]
